FAERS Safety Report 9350935 (Version 4)
Quarter: 2014Q1

REPORT INFORMATION
  Report Type: Spontaneous
  Country: US (occurrence: US)
  Receive Date: 20130617
  Receipt Date: 20140306
  Transmission Date: 20141002
  Serious: Yes (Hospitalization)
  Sender: FDA-Public Use
  Company Number: US-JNJFOC-20130604224

PATIENT
  Age: 21 Year
  Sex: Male

DRUGS (1)
  1. STELARA [Suspect]
     Indication: PSORIASIS
     Route: 058
     Dates: start: 20130513, end: 20130514

REACTIONS (2)
  - Cyst [Recovered/Resolved]
  - Rectal abscess [Recovered/Resolved with Sequelae]
